FAERS Safety Report 22372791 (Version 2)
Quarter: 2023Q2

REPORT INFORMATION
  Report Type: Spontaneous
  Country: BE (occurrence: BE)
  Receive Date: 20230526
  Receipt Date: 20230531
  Transmission Date: 20230722
  Serious: Yes (Other)
  Sender: FDA-Public Use
  Company Number: BE-PFIZER INC-PV202300017745

PATIENT
  Age: 56 Year
  Sex: Female

DRUGS (4)
  1. CIBINQO [Suspect]
     Active Substance: ABROCITINIB
     Dosage: UNK
  2. AZITHROMYCIN [Concomitant]
     Active Substance: AZITHROMYCIN
     Indication: Infection
     Dosage: 500 MG, 1X/DAY
  3. ATARAX [Concomitant]
     Active Substance: HYDROXYZINE HYDROCHLORIDE
     Dosage: NOW AND THEN
  4. XOLAIR [Concomitant]
     Active Substance: OMALIZUMAB
     Dosage: 150 MG 2 INJECTIONS PER MONTH

REACTIONS (4)
  - Superinfection bacterial [Unknown]
  - Diarrhoea [Not Recovered/Not Resolved]
  - Herpes virus infection [Unknown]
  - Acne [Unknown]
